FAERS Safety Report 24328553 (Version 5)
Quarter: 2025Q3

REPORT INFORMATION
  Report Type: Report from Study
  Country: US (occurrence: US)
  Receive Date: 20240917
  Receipt Date: 20250715
  Transmission Date: 20251021
  Serious: Yes (Hospitalization, Other)
  Sender: TAKEDA
  Company Number: US-TAKEDA-2024TUS092191

PATIENT
  Sex: Female
  Weight: 45 kg

DRUGS (34)
  1. HUMAN C1-ESTERASE INHIBITOR [Suspect]
     Active Substance: HUMAN C1-ESTERASE INHIBITOR
     Indication: Product used for unknown indication
     Dosage: 1000 INTERNATIONAL UNIT, 2/WEEK
  2. HUMAN C1-ESTERASE INHIBITOR [Suspect]
     Active Substance: HUMAN C1-ESTERASE INHIBITOR
  3. HUMAN C1-ESTERASE INHIBITOR [Suspect]
     Active Substance: HUMAN C1-ESTERASE INHIBITOR
  4. TAKHZYRO [Suspect]
     Active Substance: LANADELUMAB-FLYO
     Indication: Product used for unknown indication
     Dosage: 300 MILLIGRAM, Q2WEEKS
  5. TAKHZYRO [Suspect]
     Active Substance: LANADELUMAB-FLYO
  6. TAKHZYRO [Suspect]
     Active Substance: LANADELUMAB-FLYO
  7. EPINEPHRINE [Concomitant]
     Active Substance: EPINEPHRINE
  8. STERILE WATER [Concomitant]
     Active Substance: WATER
  9. RUCONEST [Concomitant]
     Active Substance: CONESTAT ALFA
  10. CEPHALEXIN [Concomitant]
     Active Substance: CEPHALEXIN
  11. FAMOTIDINE [Concomitant]
     Active Substance: FAMOTIDINE
  12. MOTEGRITY [Concomitant]
     Active Substance: PRUCALOPRIDE SUCCINATE
  13. HEPARIN [Concomitant]
     Active Substance: HEPARIN SODIUM
  14. SODIUM CHLORIDE [Concomitant]
     Active Substance: SODIUM CHLORIDE
  15. PREGABALIN [Concomitant]
     Active Substance: PREGABALIN
  16. SANCUSO [Concomitant]
     Active Substance: GRANISETRON
  17. CROMOLYN SODIUM [Concomitant]
     Active Substance: CROMOLYN SODIUM
  18. ALBUTEROL SULFATE [Concomitant]
     Active Substance: ALBUTEROL SULFATE
  19. ONDANSETRON HYDROCHLORIDE [Concomitant]
     Active Substance: ONDANSETRON HYDROCHLORIDE
  20. PYRIDOSTIGMINE BROMIDE [Concomitant]
     Active Substance: PYRIDOSTIGMINE BROMIDE
  21. HYDROXYZINE HYDROCHLORIDE [Concomitant]
     Active Substance: HYDROXYZINE HYDROCHLORIDE
  22. PROPRANOLOL [Concomitant]
     Active Substance: PROPRANOLOL HYDROCHLORIDE
  23. PULMICORT TURBUHALER [Concomitant]
     Active Substance: BUDESONIDE
  24. PANZYGA [Concomitant]
     Active Substance: HUMAN IMMUNOGLOBULIN G
  25. AMANTADINE [Concomitant]
     Active Substance: AMANTADINE
  26. SPIRONOLACTONE [Concomitant]
     Active Substance: SPIRONOLACTONE
  27. OXYGEN [Concomitant]
     Active Substance: OXYGEN
  28. ZITHROMAX [Concomitant]
     Active Substance: AZITHROMYCIN DIHYDRATE
  29. ZYRTEC [Concomitant]
     Active Substance: CETIRIZINE HYDROCHLORIDE
  30. AUVI-Q [Concomitant]
     Active Substance: EPINEPHRINE
  31. VITAMIN D3 [Concomitant]
     Active Substance: CHOLECALCIFEROL
  32. VITAMIN B [Concomitant]
     Active Substance: VITAMIN B
  33. HYDROCORTISONE [Concomitant]
     Active Substance: HYDROCORTISONE
  34. VITAMIN B12 [Concomitant]
     Active Substance: CYANOCOBALAMIN

REACTIONS (5)
  - Sepsis [Unknown]
  - Haematological infection [Unknown]
  - Pyrexia [Unknown]
  - Drug ineffective [Unknown]
  - Hereditary angioedema [Unknown]
